FAERS Safety Report 7166931-7 (Version None)
Quarter: 2010Q4

REPORT INFORMATION
  Report Type: 
  Country: None (occurrence: None)
  Receive Date: 20101202
  Receipt Date: 20101123
  Transmission Date: 20110411
  Serious: Yes (Hospitalization, Other)
  Sender: FDA-Public Use
  Company Number: CRC-10-212

PATIENT
  Age: 55 Year
  Sex: Male
  Weight: 68.6 kg

DRUGS (14)
  1. PHENYTOIN [Suspect]
     Indication: EPILEPSY
     Dosage: 300MG OD (300 MG, 1IN 1 D), ORAL, 200 MG (200 MG,), ORAL, 100 MG (100 MG,1 IN D), ORAL
     Route: 048
     Dates: start: 20100503, end: 20101031
  2. PHENYTOIN [Suspect]
     Indication: EPILEPSY
     Dosage: 300MG OD (300 MG, 1IN 1 D), ORAL, 200 MG (200 MG,), ORAL, 100 MG (100 MG,1 IN D), ORAL
     Route: 048
     Dates: start: 20101101, end: 20101102
  3. PHENYTOIN [Suspect]
     Indication: EPILEPSY
     Dosage: 300MG OD (300 MG, 1IN 1 D), ORAL, 200 MG (200 MG,), ORAL, 100 MG (100 MG,1 IN D), ORAL
     Route: 048
     Dates: start: 20101103
  4. E2007 (PERAMPANEL) (INVESTIGATIONAL DRUG) [Suspect]
     Indication: PARTIAL SEIZURES
     Dosage: DOUBLE BLIND-CONVERSION PERIOD (6 IN 1 D) 6 MG (2 MG,3 IN ),ORAL, 8 MG (2 MG, 4 IN 1 D), ORAL
     Route: 048
     Dates: start: 20100301, end: 20100512
  5. E2007 (PERAMPANEL) (INVESTIGATIONAL DRUG) [Suspect]
     Indication: PARTIAL SEIZURES
     Dosage: DOUBLE BLIND-CONVERSION PERIOD (6 IN 1 D) 6 MG (2 MG,3 IN ),ORAL, 8 MG (2 MG, 4 IN 1 D), ORAL
     Route: 048
     Dates: start: 20100517, end: 20100620
  6. E2007 (PERAMPANEL) (INVESTIGATIONAL DRUG) [Suspect]
     Indication: PARTIAL SEIZURES
     Dosage: DOUBLE BLIND-CONVERSION PERIOD (6 IN 1 D) 6 MG (2 MG,3 IN ),ORAL, 8 MG (2 MG, 4 IN 1 D), ORAL
     Route: 048
     Dates: start: 20100621, end: 20100919
  7. E2007 (PERAMPANEL) (INVESTIGATIONAL DRUG) [Suspect]
     Indication: PARTIAL SEIZURES
     Dosage: DOUBLE BLIND-CONVERSION PERIOD (6 IN 1 D) 6 MG (2 MG,3 IN ),ORAL, 8 MG (2 MG, 4 IN 1 D), ORAL
     Route: 048
     Dates: start: 20100920, end: 20101026
  8. E2007 (PERAMPANEL) (INVESTIGATIONAL DRUG) [Suspect]
     Indication: PARTIAL SEIZURES
     Dosage: DOUBLE BLIND-CONVERSION PERIOD (6 IN 1 D) 6 MG (2 MG,3 IN ),ORAL, 8 MG (2 MG, 4 IN 1 D), ORAL
     Route: 048
     Dates: start: 20101027, end: 20101031
  9. VALPROATE SODIUM [Concomitant]
  10. LEVETIRACETAM [Concomitant]
  11. ANALGESIC BALM (ANALGESICS) [Concomitant]
  12. ZOCOR [Concomitant]
  13. TEGRETOL [Concomitant]
  14. ACETAMINOPHEN [Concomitant]

REACTIONS (12)
  - ATAXIA [None]
  - COMPLEX PARTIAL SEIZURES [None]
  - HEAD INJURY [None]
  - HEADACHE [None]
  - LOSS OF CONSCIOUSNESS [None]
  - NAUSEA [None]
  - NYSTAGMUS [None]
  - PARTIAL SEIZURES [None]
  - POSTICTAL STATE [None]
  - SPINAL OSTEOARTHRITIS [None]
  - THERAPEUTIC AGENT TOXICITY [None]
  - VERTIGO [None]
